FAERS Safety Report 16271026 (Version 1)
Quarter: 2019Q2

REPORT INFORMATION
  Report Type: Spontaneous
  Country: US (occurrence: US)
  Receive Date: 20190503
  Receipt Date: 20190503
  Transmission Date: 20190711
  Serious: No
  Sender: FDA-Public Use
  Company Number: US-SUN PHARMACEUTICAL INDUSTRIES LTD-2019R1-206621

PATIENT
  Sex: Male

DRUGS (1)
  1. BROMSITE [Suspect]
     Active Substance: BROMFENAC SODIUM
     Indication: PRODUCT USED FOR UNKNOWN INDICATION
     Dosage: (3 TIMES PER DAY IN ONE EYE FOR THE FIRST WEEK AND ONCE PER DAY FOR THE SECOND WEEK)
     Route: 065

REACTIONS (1)
  - Off label use [Unknown]
